FAERS Safety Report 9464485 (Version 1)
Quarter: 2013Q3

REPORT INFORMATION
  Report Type: Spontaneous
  Country: US (occurrence: US)
  Receive Date: 20130819
  Receipt Date: 20130819
  Transmission Date: 20140515
  Serious: No
  Sender: FDA-Public Use
  Company Number: US-PFIZER INC-2013239009

PATIENT
  Age: 58 Year
  Sex: Female
  Weight: 56.69 kg

DRUGS (5)
  1. EFFEXOR XR [Suspect]
     Indication: DEPRESSION
     Dosage: 150 MG (TWO CAPSULES OF 75MG EACH) , DAILY
     Route: 048
  2. EFFEXOR XR [Suspect]
     Indication: PAIN
  3. EFFEXOR XR [Suspect]
     Indication: ARTHRITIS
  4. EFFEXOR XR [Suspect]
     Indication: FIBROMYALGIA
  5. NEURONTIN [Concomitant]
     Indication: FIBROMYALGIA
     Dosage: 300 MG DAILY

REACTIONS (6)
  - Therapeutic response unexpected [Unknown]
  - Emotional disorder [Unknown]
  - Feeling abnormal [Unknown]
  - Crying [Unknown]
  - Swelling [Unknown]
  - Off label use [Unknown]
